FAERS Safety Report 13595939 (Version 2)
Quarter: 2017Q3

REPORT INFORMATION
  Report Type: Spontaneous
  Country: US (occurrence: US)
  Receive Date: 20170531
  Receipt Date: 20170725
  Transmission Date: 20171127
  Serious: No
  Sender: FDA-Public Use
  Company Number: US-JNJFOC-20170513912

PATIENT
  Age: 75 Year
  Sex: Female
  Weight: 90.72 kg

DRUGS (5)
  1. TYLENOL 8HR [Suspect]
     Active Substance: ACETAMINOPHEN
     Indication: PAIN
     Dosage: UNSPECIFIED BATCH
     Route: 048
  2. CARAFATE [Concomitant]
     Active Substance: SUCRALFATE
     Indication: GASTRIC DISORDER
     Dosage: DOSAGE: 10MLS 4XDAY W/M, SINCE MONTH
     Route: 048
     Dates: start: 20170407
  3. CARAFATE [Concomitant]
     Active Substance: SUCRALFATE
     Indication: GASTRIC ULCER
     Dosage: DOSAGE: 10MLS 4XDAY W/M, SINCE MONTH
     Route: 048
     Dates: start: 20170407
  4. PROTONIX [Concomitant]
     Active Substance: PANTOPRAZOLE SODIUM
     Indication: DYSPEPSIA
     Dosage: MONTH
     Route: 065
     Dates: start: 20170407
  5. TYLENOL 8HR [Suspect]
     Active Substance: ACETAMINOPHEN
     Indication: PAIN
     Route: 048
     Dates: start: 20170511

REACTIONS (5)
  - Incorrect dose administered [Unknown]
  - Off label use [Unknown]
  - Laceration [Recovered/Resolved]
  - Inappropriate schedule of drug administration [Unknown]
  - Product container seal issue [Unknown]

NARRATIVE: CASE EVENT DATE: 20170511
